FAERS Safety Report 18016541 (Version 11)
Quarter: 2022Q3

REPORT INFORMATION
  Report Type: Report from Study
  Country: US (occurrence: US)
  Receive Date: 20200713
  Receipt Date: 20220907
  Transmission Date: 20221027
  Serious: Yes (Other)
  Sender: FDA-Public Use
  Company Number: NVSC2020US196113

PATIENT
  Age: 69 Year
  Sex: Female
  Weight: 110 kg

DRUGS (3)
  1. EXJADE [Suspect]
     Active Substance: DEFERASIROX
     Indication: Haemochromatosis
     Dosage: 500 MG, QD
     Route: 048
  2. EXJADE [Suspect]
     Active Substance: DEFERASIROX
     Indication: Myelodysplastic syndrome
     Dosage: 500 MG, QD
     Route: 048
     Dates: start: 20200710
  3. EXJADE [Suspect]
     Active Substance: DEFERASIROX
     Dosage: 500 MG, QD
     Route: 048
     Dates: start: 20200713

REACTIONS (12)
  - Blindness unilateral [Unknown]
  - Uveitis [Unknown]
  - Urinary tract infection [Unknown]
  - Eye inflammation [Unknown]
  - Pollakiuria [Unknown]
  - Vitreous floaters [Unknown]
  - Illness [Unknown]
  - Chest pain [Unknown]
  - Blood iron abnormal [Unknown]
  - Haemoglobin decreased [Unknown]
  - Asthenia [Unknown]
  - Product dose omission issue [Unknown]

NARRATIVE: CASE EVENT DATE: 20220301
